FAERS Safety Report 8401967 (Version 6)
Quarter: 2013Q3

REPORT INFORMATION
  Report Type: Spontaneous
  Country: US (occurrence: US)
  Receive Date: 20120213
  Receipt Date: 20130730
  Transmission Date: 20140515
  Serious: Yes (Other)
  Sender: FDA-Public Use
  Company Number: US-PFIZER INC-2012034589

PATIENT
  Age: 55 Year
  Sex: Male
  Weight: 87.98 kg

DRUGS (14)
  1. VIAGRA [Suspect]
     Indication: ERECTILE DYSFUNCTION
     Dosage: UNK
     Route: 048
     Dates: start: 1998
  2. VIAGRA [Suspect]
     Indication: PERIPHERAL VASCULAR DISORDER
     Dosage: 50 MG, AS NEEDED
     Route: 048
     Dates: start: 20120206
  3. VIAGRA [Suspect]
     Dosage: ONE AND HALF TABLET (75 MG), UNK
     Route: 048
     Dates: start: 20120206
  4. VIAGRA [Suspect]
     Dosage: 50 MG, AS NEEDED
     Route: 048
  5. PREDNISONE [Concomitant]
     Indication: BURSITIS
     Dosage: 20 MG, 1X/DAY
  6. PREDNISONE [Concomitant]
     Indication: ARTHRITIS
  7. PREDNISONE [Concomitant]
     Indication: TENDONITIS
  8. OMEPRAZOLE [Concomitant]
     Indication: DYSPEPSIA
     Dosage: 20 MG, 1X/DAY
     Dates: start: 201201
  9. MELATONIN [Concomitant]
     Indication: SLEEP APNOEA SYNDROME
     Dosage: 3 MG, 2X/DAY
  10. FISH OIL [Concomitant]
     Indication: ROUTINE HEALTH MAINTENANCE
     Dosage: 1000 MG, 1X/DAY
  11. TUMS [Concomitant]
     Dosage: UNK
  12. ETODOLAC [Concomitant]
     Dosage: UNK
  13. PANTOPRAZOLE [Concomitant]
     Dosage: UNK
  14. TAMSULOSIN [Concomitant]
     Dosage: UNK

REACTIONS (4)
  - Prostatomegaly [Unknown]
  - Sensation of blood flow [Unknown]
  - Therapeutic response unexpected [Unknown]
  - Nausea [Unknown]
